FAERS Safety Report 24799261 (Version 1)
Quarter: 2024Q4

REPORT INFORMATION
  Report Type: Spontaneous
  Country: US (occurrence: None)
  Receive Date: 20241231
  Receipt Date: 20241231
  Transmission Date: 20250114
  Serious: No
  Sender: Public
  Company Number: None

PATIENT
  Age: 0 Year
  Sex: Male
  Weight: 2.92 kg

DRUGS (6)
  1. SERTRALINE [Suspect]
     Active Substance: SERTRALINE HYDROCHLORIDE
     Dates: start: 20191229
  2. ONDANSETRON [Suspect]
     Active Substance: ONDANSETRON
     Dates: start: 20191229
  3. FAMOTIDINE [Suspect]
     Active Substance: FAMOTIDINE
     Dates: start: 20200126
  4. LORATADINE [Suspect]
     Active Substance: LORATADINE
     Dates: start: 20200419
  5. ALBUTEROL [Suspect]
     Active Substance: ALBUTEROL
     Dates: start: 20191229
  6. IRON [Suspect]
     Active Substance: IRON
     Dates: start: 20200714

REACTIONS (2)
  - Penoscrotal fusion [None]
  - Phimosis [None]

NARRATIVE: CASE EVENT DATE: 20200930
